FAERS Safety Report 6600590-4 (Version None)
Quarter: 2010Q1

REPORT INFORMATION
  Report Type: 
  Country: None (occurrence: None)
  Receive Date: 20100224
  Receipt Date: 20091217
  Transmission Date: 20100710
  Serious: No
  Sender: FDA-Public Use
  Company Number: US-BAYER-200943514NA

PATIENT
  Age: 57 Year
  Sex: Male
  Weight: 91 kg

DRUGS (1)
  1. ULTRAVIST 300 [Suspect]
     Indication: COMPUTERISED TOMOGRAM THORAX
     Dosage: TOTAL DAILY DOSE: 100 ML  UNIT DOSE: 200 ML
     Route: 042
     Dates: start: 20091217, end: 20091217

REACTIONS (1)
  - URTICARIA [None]
